FAERS Safety Report 5357143-8 (Version None)
Quarter: 2007Q2

REPORT INFORMATION
  Report Type: 
  Country: None (occurrence: None)
  Receive Date: 20070614
  Receipt Date: 20070601
  Transmission Date: 20071010
  Serious: Yes (Hospitalization)
  Sender: FDA-Public Use
  Company Number: GB-AMGEN-US226369

PATIENT
  Sex: Female
  Weight: 61 kg

DRUGS (8)
  1. ENBREL [Suspect]
     Indication: RHEUMATOID ARTHRITIS
     Route: 058
     Dates: start: 20070503, end: 20070510
  2. ACETAMINOPHEN W/ CODEINE [Concomitant]
     Dosage: UNKNOWN
  3. FERROUS SULFATE [Concomitant]
     Route: 048
  4. FOLIC ACID [Concomitant]
     Dosage: 10 MG
     Route: 048
  5. LANSOPRAZOLE [Concomitant]
     Route: 048
  6. PREDNISOLONE [Concomitant]
     Route: 048
  7. MULTI-VITAMINS [Concomitant]
     Dosage: UNKNOWN
  8. DICLOFENAC [Concomitant]
     Route: 048

REACTIONS (8)
  - EYE SWELLING [None]
  - HEADACHE [None]
  - INCORRECT DOSE ADMINISTERED [None]
  - INJECTION SITE PAIN [None]
  - PYREXIA [None]
  - RASH [None]
  - SWELLING [None]
  - SWELLING FACE [None]
